FAERS Safety Report 8190308 (Version 3)
Quarter: 2013Q1

REPORT INFORMATION
  Report Type: Spontaneous
  Country: NO (occurrence: NO)
  Receive Date: 20111019
  Receipt Date: 20130118
  Transmission Date: 20140127
  Serious: Yes (Death, Life-Threatening, Hospitalization, Other)
  Sender: FDA-Public Use
  Company Number: NO-ABBOTT-11P-122-0866118-00

PATIENT
  Sex: Male

DRUGS (6)
  1. ADALIMUMAB [Suspect]
     Indication: CROHN^S DISEASE
     Route: 058
     Dates: start: 2007, end: 20071110
  2. ADALIMUMAB [Suspect]
     Route: 058
     Dates: start: 20050504, end: 20051110
  3. REMICADE [Suspect]
     Indication: CROHN^S DISEASE
     Dosage: 3 INFUSIONS OF 400MG
     Route: 042
     Dates: start: 20040415, end: 20040610
  4. AZATHIOPRINE [Suspect]
     Indication: CROHN^S DISEASE
     Route: 048
     Dates: start: 2004, end: 200704
  5. AZATHIOPRINE [Suspect]
     Route: 048
     Dates: start: 1996, end: 2004
  6. INFLIXIMAB [Suspect]
     Indication: CROHN^S DISEASE
     Dates: start: 20040415, end: 20040610

REACTIONS (9)
  - Hepatosplenic T-cell lymphoma [Fatal]
  - Sepsis [Fatal]
  - Drug ineffective [Fatal]
  - Leukopenia [Recovered/Resolved]
  - Anaemia [Unknown]
  - Thrombocytopenia [Unknown]
  - Fistula [Unknown]
  - Pyrexia [Unknown]
  - Leukopenia [Unknown]
